FAERS Safety Report 24393457 (Version 1)
Quarter: 2024Q4

REPORT INFORMATION
  Report Type: Spontaneous
  Country: US (occurrence: None)
  Receive Date: 20241003
  Receipt Date: 20241003
  Transmission Date: 20250115
  Serious: Yes (Hospitalization)
  Sender: Public
  Company Number: None

PATIENT
  Age: 77 Year
  Sex: Male

DRUGS (1)
  1. IMATINIB MESYLATE [Suspect]
     Active Substance: IMATINIB MESYLATE
     Indication: Scleroderma
     Dosage: FREQUENCY : QPM
     Route: 048

REACTIONS (3)
  - Therapy interrupted [None]
  - Dyspnoea [None]
  - Pneumonitis [None]
